FAERS Safety Report 15237066 (Version 1)
Quarter: 2018Q3

REPORT INFORMATION
  Report Type: Spontaneous
  Country: US (occurrence: US)
  Receive Date: 20180803
  Receipt Date: 20180803
  Transmission Date: 20181010
  Serious: No
  Sender: FDA-Public Use
  Company Number: US-SA-2018SA209807

PATIENT
  Age: 28 Year

DRUGS (2)
  1. CYCLO [Concomitant]
     Active Substance: UNSPECIFIED INGREDIENT
  2. DUPIXENT [Suspect]
     Active Substance: DUPILUMAB
     Dosage: UNK
     Dates: start: 201802

REACTIONS (2)
  - Product use issue [Unknown]
  - Drug ineffective [Unknown]
